FAERS Safety Report 12923929 (Version 1)
Quarter: 2016Q4

REPORT INFORMATION
  Report Type: Spontaneous
  Country: JP (occurrence: JP)
  Receive Date: 20161109
  Receipt Date: 20161109
  Transmission Date: 20170207
  Serious: Yes (Hospitalization)
  Sender: FDA-Public Use
  Company Number: JP-B.I. PHARMACEUTICALS,INC./RIDGEFIELD-2016-NB-000718

PATIENT
  Age: 6 Decade

DRUGS (1)
  1. GILOTRIF [Suspect]
     Active Substance: AFATINIB
     Indication: NON-SMALL CELL LUNG CANCER
     Route: 048
     Dates: start: 201610

REACTIONS (3)
  - Cardiac failure [Not Recovered/Not Resolved]
  - Diarrhoea [Not Recovered/Not Resolved]
  - Stomatitis [Unknown]

NARRATIVE: CASE EVENT DATE: 20161107
